FAERS Safety Report 10174521 (Version 1)
Quarter: 2014Q2

REPORT INFORMATION
  Report Type: Spontaneous
  Country: US (occurrence: None)
  Receive Date: 20140416
  Receipt Date: 20140416
  Transmission Date: 20141212
  Serious: No
  Sender: FDA-Public Use
  Company Number: 163-POMAL-13124779

PATIENT
  Age: 75 Year
  Sex: Male
  Weight: 92 kg

DRUGS (10)
  1. POMALYST (POMALIDOMIDE) (4 MILLIGRAM, CAPSULES) [Suspect]
     Indication: PLASMA CELL MYELOMA
     Dosage: 21 IN 28 D
     Route: 048
     Dates: start: 20130530
  2. AZITHROMYCIN (AZITHROMYCIN) (TABLETS) [Concomitant]
  3. ACYCLOVIR (ACICLOVIR) (TABLETS) [Concomitant]
  4. GABAPENTIN (GABAPENTIN) (TABLETS) [Concomitant]
  5. ALLOPURINOL (ALLOPURINOL) (TABLETS) [Concomitant]
  6. VITAMIN B COMPLEX (B-KOMPLEX ^LECIVA^) (TABLETS) [Concomitant]
  7. FORTESTA (TESTOTERONE) [Concomitant]
  8. DEXAMETHASONE (DEXAMETHASONE) (UNKNOWN) [Concomitant]
  9. PRESERVISION AREDS (VITEYES) (UNKNOWN) [Concomitant]
  10. VITAMIN D (ERGOCALCIFEROL) (UNKNOWN) [Concomitant]

REACTIONS (1)
  - Nasopharyngitis [None]
